FAERS Safety Report 9217082 (Version 6)
Quarter: 2013Q3

REPORT INFORMATION
  Report Type: Spontaneous
  Country: DE (occurrence: None)
  Receive Date: 20130404
  Receipt Date: 20130806
  Transmission Date: 20140515
  Serious: Yes (Hospitalization)
  Sender: FDA-Public Use
  Company Number: 2013MPI00179

PATIENT
  Age: 31 Year
  Sex: Male

DRUGS (6)
  1. BRENTUXIMAB VEDOTIN [Suspect]
     Indication: HODGKIN^S DISEASE
     Dosage: 1.8 MG/KG, QCYCLE, INTRAVENOUS
     Route: 042
     Dates: start: 20121219, end: 20130313
  2. CYCLOPHOSPHAMIDE [Suspect]
     Indication: HODGKIN^S DISEASE
     Dosage: 1250 MG/M2, QCYCLE
     Dates: start: 20121220
  3. DOXORUBICIN [Suspect]
     Indication: HODGKIN^S DISEASE
     Dosage: 40 MG/M2, QCYCLE
     Dates: start: 20121220, end: 20130314
  4. ETOPOSIDE [Suspect]
     Indication: HODGKIN^S DISEASE
     Dosage: 100 MG/M2, QCYCLE
     Dates: start: 20121220, end: 20130316
  5. DACARBAZINE [Suspect]
     Indication: HODGKIN^S DISEASE
     Dosage: 250 MG/M2, QCYCLE
     Dates: start: 20121221, end: 20130316
  6. DEXAMETHASONE [Suspect]
     Indication: HODGKIN^S DISEASE
     Dosage: 40 MG/M2, QCYCLE
     Dates: start: 20121220, end: 20130317

REACTIONS (9)
  - Febrile neutropenia [None]
  - Atypical pneumonia [None]
  - Nasopharyngitis [None]
  - Pancytopenia [None]
  - Blood sodium decreased [None]
  - Blood potassium decreased [None]
  - Bronchitis [None]
  - Lymphoma [None]
  - Febrile neutropenia [None]
